FAERS Safety Report 10537743 (Version 1)
Quarter: 2014Q4

REPORT INFORMATION
  Report Type: Spontaneous
  Country: US (occurrence: None)
  Receive Date: 20141022
  Receipt Date: 20141022
  Transmission Date: 20150529
  Serious: No
  Sender: FDA-Public Use
  Company Number: None

PATIENT
  Age: 45 Year
  Sex: Male
  Weight: 82.1 kg

DRUGS (1)
  1. BUPRENORPHINE/NALOXONE [Suspect]
     Active Substance: BUPRENORPHINE\NALOXONE
     Indication: DRUG DEPENDENCE
     Route: 048
     Dates: start: 20140415, end: 20140828

REACTIONS (12)
  - Urticaria [None]
  - Pustular psoriasis [None]
  - Rash [None]
  - Drug withdrawal syndrome [None]
  - Condition aggravated [None]
  - Pruritus [None]
  - Anxiety [None]
  - Drug dependence [None]
  - Product substitution issue [None]
  - Treatment noncompliance [None]
  - Incorrect dose administered [None]
  - Dermatitis [None]

NARRATIVE: CASE EVENT DATE: 20140724
